FAERS Safety Report 20490718 (Version 2)
Quarter: 2022Q1

REPORT INFORMATION
  Report Type: Report from Study
  Country: CO (occurrence: CO)
  Receive Date: 20220218
  Receipt Date: 20220225
  Transmission Date: 20220423
  Serious: Yes (Hospitalization, Other)
  Sender: FDA-Public Use
  Company Number: CO-SA-SAC20220215000470

PATIENT
  Age: 60 Year
  Sex: Female

DRUGS (2)
  1. LANREOTIDE ACETATE [Suspect]
     Active Substance: LANREOTIDE ACETATE
     Indication: Acromegaly
     Dosage: 120 MG, QM
     Route: 058
     Dates: start: 20210609, end: 20210927
  2. VALSARTAN [Concomitant]
     Active Substance: VALSARTAN
     Indication: Blood pressure measurement
     Dosage: 160 MG, QD

REACTIONS (5)
  - Cardiac failure [Recovering/Resolving]
  - Syncope [Recovering/Resolving]
  - Inflammation [Recovering/Resolving]
  - Chest pain [Recovering/Resolving]
  - Renal neoplasm [Recovering/Resolving]

NARRATIVE: CASE EVENT DATE: 20210101
